FAERS Safety Report 15486926 (Version 2)
Quarter: 2018Q4

REPORT INFORMATION
  Report Type: Not Available
  Country: US (occurrence: US)
  Receive Date: 20181011
  Receipt Date: 20181121
  Transmission Date: 20190205
  Serious: No
  Sender: FDA-Public Use
  Company Number: US-NEUROCRINE BIOSCIENCES INC.-2018NBI02928

PATIENT
  Sex: Female

DRUGS (6)
  1. SERTRALINE [Concomitant]
     Active Substance: SERTRALINE HYDROCHLORIDE
     Indication: DEPRESSION
     Route: 048
     Dates: start: 20180207, end: 20181002
  2. INGREZZA [Suspect]
     Active Substance: VALBENAZINE
     Dates: start: 20180925, end: 20181003
  3. HALDOL-D [Concomitant]
     Indication: PSYCHOTIC DISORDER
     Route: 030
     Dates: start: 2013
  4. HALDOL-D [Concomitant]
     Indication: SCHIZOAFFECTIVE DISORDER
  5. BENZTROPINE. [Concomitant]
     Active Substance: BENZTROPINE
     Route: 048
  6. INGREZZA [Suspect]
     Active Substance: VALBENAZINE
     Indication: TARDIVE DYSKINESIA
     Dates: start: 20180914, end: 20180921

REACTIONS (2)
  - Agitation [Recovered/Resolved]
  - Restlessness [Recovered/Resolved]

NARRATIVE: CASE EVENT DATE: 2018
